FAERS Safety Report 8300234-X (Version None)
Quarter: 2012Q2

REPORT INFORMATION
  Report Type: 
  Country: None (occurrence: None)
  Receive Date: 20120420
  Receipt Date: 20120413
  Transmission Date: 20120825
  Serious: Yes (Hospitalization, Other)
  Sender: FDA-Public Use
  Company Number: US-PFIZER INC-2012093873

PATIENT
  Sex: Female

DRUGS (1)
  1. HYDROCORTISONE SODIUM SUCCINATE [Suspect]
     Dosage: UNK

REACTIONS (5)
  - CONVULSION [None]
  - HYPOGLYCAEMIA [None]
  - URINARY TRACT INFECTION [None]
  - VOMITING [None]
  - LETHARGY [None]
